FAERS Safety Report 16874058 (Version 1)
Quarter: 2019Q4

REPORT INFORMATION
  Report Type: Report from Study
  Country: EG (occurrence: EG)
  Receive Date: 20191001
  Receipt Date: 20191001
  Transmission Date: 20200122
  Serious: Yes (Other)
  Sender: FDA-Public Use
  Company Number: PHHY2019EG225536

PATIENT
  Age: 52 Year
  Sex: Female

DRUGS (3)
  1. AFINITOR [Suspect]
     Active Substance: EVEROLIMUS
     Indication: METASTASES TO LYMPH NODES
     Dosage: 5 MG, BID
     Route: 048
     Dates: start: 20190102, end: 201908
  2. AFINITOR [Suspect]
     Active Substance: EVEROLIMUS
     Indication: BREAST CANCER
  3. AFINITOR [Suspect]
     Active Substance: EVEROLIMUS
     Indication: METASTASES TO LIVER

REACTIONS (12)
  - Diabetes mellitus [Not Recovered/Not Resolved]
  - Stomatitis [Recovered/Resolved]
  - Drug ineffective [Not Recovered/Not Resolved]
  - Skin discolouration [Recovered/Resolved]
  - Dysuria [Recovered/Resolved]
  - Proctitis [Recovered/Resolved]
  - Metastatic neoplasm [Not Recovered/Not Resolved]
  - Weight decreased [Recovered/Resolved]
  - Hypersensitivity [Recovered/Resolved]
  - Mouth ulceration [Recovered/Resolved]
  - Hypertension [Not Recovered/Not Resolved]
  - Gastritis [Recovered/Resolved]

NARRATIVE: CASE EVENT DATE: 20190605
